FAERS Safety Report 4271791-8 (Version None)
Quarter: 2004Q1

REPORT INFORMATION
  Report Type: 
  Country: None (occurrence: None)
  Receive Date: 20040115
  Receipt Date: 20031113
  Transmission Date: 20041129
  Serious: Yes (Hospitalization)
  Sender: FDA-Public Use
  Company Number: JP-GLAXOSMITHKLINE-B0315006A

PATIENT
  Age: 73 Year
  Sex: Female
  Weight: 35 kg

DRUGS (10)
  1. VALTREX [Suspect]
     Indication: HERPES ZOSTER
     Dosage: 3000MG PER DAY
     Route: 048
     Dates: start: 20031107, end: 20031109
  2. BUFEXAMAC [Suspect]
     Indication: HERPES ZOSTER
     Dosage: 10G PER DAY
     Route: 061
     Dates: start: 20031107, end: 20031109
  3. ALFACALCIDOL [Concomitant]
     Dosage: 1U PER DAY
     Route: 048
  4. CALCIUM LACTATE [Concomitant]
     Dosage: 1G PER DAY
     Route: 048
  5. ATENOLOL [Concomitant]
     Dosage: 25MG PER DAY
     Route: 048
  6. CHLORPHENESIN CARBAMATE [Concomitant]
     Dosage: 3U PER DAY
     Route: 048
  7. MECOBALAMIN [Concomitant]
     Dosage: 3U PER DAY
     Route: 048
  8. NITRAZEPAM [Concomitant]
     Dosage: 5MG PER DAY
     Route: 048
  9. LOXOPROFEN SODIUM [Concomitant]
     Dosage: 3U PER DAY
     Route: 048
  10. AZULENE SULFONATE SODIUM L-GLUTAMINE [Concomitant]
     Dosage: 2G PER DAY
     Route: 048

REACTIONS (6)
  - BLOOD UREA INCREASED [None]
  - C-REACTIVE PROTEIN INCREASED [None]
  - EOSINOPHILIA [None]
  - ERYTHEMA [None]
  - PRURITUS GENERALISED [None]
  - SCAB [None]
